FAERS Safety Report 23396630 (Version 1)
Quarter: 2024Q1

REPORT INFORMATION
  Report Type: Spontaneous
  Country: EG (occurrence: EG)
  Receive Date: 20240112
  Receipt Date: 20240112
  Transmission Date: 20240409
  Serious: Yes (Other)
  Sender: FDA-Public Use
  Company Number: EG-HIKMA PHARMACEUTICALS-EG-H14001-24-00216

PATIENT
  Age: 58 Year
  Sex: Female
  Weight: 75 kg

DRUGS (4)
  1. CYCLOPHOSPHAMIDE [Suspect]
     Active Substance: CYCLOPHOSPHAMIDE
     Indication: Breast cancer
     Dosage: 1116 MILLIGRAM, EVERY 21 DAYS
     Route: 041
  2. CYCLOPHOSPHAMIDE [Suspect]
     Active Substance: CYCLOPHOSPHAMIDE
     Dosage: 1116 MILLIGRAM, EVERY 21 DAYS
     Route: 041
     Dates: start: 20231118
  3. PACLITAXEL [Suspect]
     Active Substance: PACLITAXEL
     Indication: Breast cancer
     Dosage: 148 MILLIGRAM, WEEKLY, EVERY 21 DAYS
     Route: 041
  4. PACLITAXEL [Suspect]
     Active Substance: PACLITAXEL
     Dosage: 148 MILLIGRAM, WEEKLY, EVERY 21 DAYS
     Route: 041
     Dates: start: 20231118

REACTIONS (2)
  - Taste disorder [Not Recovered/Not Resolved]
  - White blood cell count decreased [Recovered/Resolved]

NARRATIVE: CASE EVENT DATE: 20231124
